FAERS Safety Report 16151045 (Version 1)
Quarter: 2019Q2

REPORT INFORMATION
  Report Type: Spontaneous
  Country: FR (occurrence: FR)
  Receive Date: 20190403
  Receipt Date: 20190403
  Transmission Date: 20190711
  Serious: Yes (Hospitalization, Other)
  Sender: FDA-Public Use
  Company Number: FR-009507513-1904FRA000527

PATIENT
  Sex: Female
  Weight: 50 kg

DRUGS (11)
  1. CANCIDAS [Suspect]
     Active Substance: CASPOFUNGIN ACETATE
  2. HYDROXYZINE [Suspect]
     Active Substance: HYDROXYZINE HYDROCHLORIDE
     Dates: start: 20150220, end: 20150226
  3. TAZOCILLINE [Suspect]
     Active Substance: PIPERACILLIN SODIUM\TAZOBACTAM SODIUM
  4. ALPRAZOLAM. [Concomitant]
     Active Substance: ALPRAZOLAM
  5. DEXAMETHASONE. [Concomitant]
     Active Substance: DEXAMETHASONE
     Indication: DIFFERENTIATION SYNDROME
  6. IDARUBICIN HYDROCHLORIDE. [Suspect]
     Active Substance: IDARUBICIN HYDROCHLORIDE
     Dates: start: 20150119
  7. IMIPENEM [Suspect]
     Active Substance: IMIPENEM
  8. LUTENYL [Suspect]
     Active Substance: NOMEGESTROL ACETATE
     Dates: start: 20150220, end: 20150226
  9. VESANOID [Suspect]
     Active Substance: TRETINOIN
     Indication: ACUTE MYELOID LEUKAEMIA
     Dosage: FOR 15 DAYS EVERY 3 MONTHS
     Route: 048
     Dates: start: 20150622
  10. ARACYTINE [Suspect]
     Active Substance: CYTARABINE
     Dates: start: 20150119
  11. VESANOID [Suspect]
     Active Substance: TRETINOIN
     Indication: ACUTE MYELOID LEUKAEMIA
     Dosage: 40 MILLIGRAM, Q12H
     Route: 048
     Dates: start: 20150114, end: 20150217

REACTIONS (7)
  - Differentiation syndrome [Recovered/Resolved]
  - Erythema [Unknown]
  - Toxic skin eruption [Unknown]
  - Aplasia [Unknown]
  - Colitis [Recovered/Resolved]
  - Acute sinusitis [Recovered/Resolved]
  - Rash [Unknown]

NARRATIVE: CASE EVENT DATE: 18991231
